FAERS Safety Report 11422803 (Version 1)
Quarter: 2015Q3

REPORT INFORMATION
  Report Type: Spontaneous
  Country: US (occurrence: US)
  Receive Date: 20150827
  Receipt Date: 20150827
  Transmission Date: 20151125
  Serious: No
  Sender: FDA-Public Use
  Company Number: US-009507513-1508USA010481

PATIENT
  Sex: Male

DRUGS (1)
  1. ISENTRESS [Suspect]
     Active Substance: RALTEGRAVIR POTASSIUM
     Dosage: 1 UNIT OF USE BOTTLE OF 60
     Route: 048

REACTIONS (3)
  - Product packaging quantity issue [Unknown]
  - Drug dispensing error [Unknown]
  - No adverse event [Unknown]
